FAERS Safety Report 12783940 (Version 1)
Quarter: 2016Q3

REPORT INFORMATION
  Report Type: Spontaneous
  Country: IE (occurrence: IE)
  Receive Date: 20160927
  Receipt Date: 20160927
  Transmission Date: 20161109
  Serious: Yes (Hospitalization)
  Sender: FDA-Public Use
  Company Number: IE-PFIZER INC-2016137828

PATIENT
  Age: 54 Year
  Sex: Male

DRUGS (3)
  1. XALKORI [Suspect]
     Active Substance: CRIZOTINIB
     Indication: NON-SMALL CELL LUNG CANCER
     Dosage: 250 MG, 2X/DAY
     Dates: start: 20160223, end: 201603
  2. XALKORI [Suspect]
     Active Substance: CRIZOTINIB
     Dosage: 200 MG, 2X/DAY
     Dates: start: 2016
  3. OXYCONTIN [Concomitant]
     Active Substance: OXYCODONE HYDROCHLORIDE
     Indication: BACK PAIN
     Dosage: UNK
     Dates: start: 201605

REACTIONS (12)
  - Pain [Unknown]
  - Prostatic specific antigen increased [Unknown]
  - Hallucination [Unknown]
  - Anxiety [Unknown]
  - Stomatitis [Unknown]
  - Decreased appetite [Recovering/Resolving]
  - Dry mouth [Unknown]
  - Visual impairment [Unknown]
  - Fatigue [Not Recovered/Not Resolved]
  - Liver function test increased [Unknown]
  - Hypertension [Unknown]
  - Sensitivity of teeth [Unknown]
